FAERS Safety Report 23448094 (Version 2)
Quarter: 2024Q1

REPORT INFORMATION
  Report Type: Spontaneous
  Country: US (occurrence: US)
  Receive Date: 20240126
  Receipt Date: 20240215
  Transmission Date: 20240410
  Serious: Yes (Life-Threatening, Hospitalization, Other)
  Sender: FDA-Public Use
  Company Number: US-PFIZER INC-202400022799

PATIENT
  Age: 67 Year
  Sex: Female
  Weight: 116.57 kg

DRUGS (1)
  1. PAXLOVID [Suspect]
     Active Substance: NIRMATRELVIR\RITONAVIR
     Indication: COVID-19 treatment
     Dosage: 150-100MG 1 TAB OF EACH BID
     Route: 048
     Dates: start: 20240103, end: 20240107

REACTIONS (10)
  - Pulmonary embolism [Recovered/Resolved with Sequelae]
  - Pulmonary thrombosis [Unknown]
  - Lung infiltration [Unknown]
  - Pleural effusion [Unknown]
  - Fatigue [Unknown]
  - Lethargy [Unknown]
  - Inflammatory marker increased [Unknown]
  - Fibrin D dimer increased [Unknown]
  - Sciatica [Unknown]
  - Back pain [Unknown]

NARRATIVE: CASE EVENT DATE: 20240101
